FAERS Safety Report 19283367 (Version 3)
Quarter: 2021Q2

REPORT INFORMATION
  Report Type: Spontaneous
  Country: US (occurrence: US)
  Receive Date: 20210520
  Receipt Date: 20210622
  Transmission Date: 20210717
  Serious: Yes (Other)
  Sender: FDA-Public Use
  Company Number: US-BIOMARINAP-US-2021-136627

PATIENT
  Age: 15 Year
  Sex: Female
  Weight: 24 kg

DRUGS (1)
  1. VIMIZIM [Suspect]
     Active Substance: ELOSULFASE ALFA
     Indication: MUCOPOLYSACCHARIDOSIS IV
     Dosage: 65 MILLIGRAM, QW
     Route: 042
     Dates: start: 201806

REACTIONS (4)
  - Tympanic membrane perforation [Recovering/Resolving]
  - Otorrhoea [Recovering/Resolving]
  - Excessive granulation tissue [Recovering/Resolving]
  - Ear discomfort [Recovering/Resolving]
